FAERS Safety Report 6370944-2 (Version None)
Quarter: 2009Q3

REPORT INFORMATION
  Report Type: 
  Country: None (occurrence: None)
  Receive Date: 20090923
  Receipt Date: 20071212
  Transmission Date: 20100115
  Serious: No
  Sender: FDA-Public Use
  Company Number: US-ASTRAZENECA-2006UW23535

PATIENT
  Age: 38 Year
  Sex: Male

DRUGS (38)
  1. SEROQUEL [Suspect]
     Dosage: 25 MG TO 300 MG
     Route: 048
     Dates: start: 20000128
  2. NEURONTIN [Concomitant]
  3. ZOLOFT [Concomitant]
  4. NALTREXONE HYDROCHLORIDE [Concomitant]
  5. RANITIDINE [Concomitant]
  6. SONATA [Concomitant]
  7. HYDROXYZINE PAM [Concomitant]
  8. METHOCARBAMOL [Concomitant]
  9. NAPROXEN [Concomitant]
  10. EFFEXOR CR [Concomitant]
  11. VEETIDS [Concomitant]
  12. ALPRAZOLAM [Concomitant]
  13. CLONAZEPAM [Concomitant]
  14. RISPERDAL [Concomitant]
  15. IBUPROFEN [Concomitant]
  16. CARISOPRODOL [Concomitant]
  17. AMBIEN [Concomitant]
  18. AMITRIPTYLINE [Concomitant]
  19. FLUVOXAMINE MALEATE [Concomitant]
  20. PERPHENAZINE [Concomitant]
  21. ESKALITH CR [Concomitant]
  22. METOPROLOL TARTRATE [Concomitant]
  23. PHENOBARBITAL [Concomitant]
  24. FOLIC ACID [Concomitant]
  25. LEXAPRO [Concomitant]
  26. PREVACID [Concomitant]
  27. PRILOSEC OTC [Concomitant]
  28. ABILIFY [Concomitant]
  29. DEPAKOTE ER [Concomitant]
  30. ROZEREM [Concomitant]
  31. GUAIFENEX PSE [Concomitant]
  32. GEODON [Concomitant]
  33. VIAGRA [Concomitant]
  34. TRAZODONE [Concomitant]
  35. LAMICTAL [Concomitant]
  36. GUAIFENESIN [Concomitant]
  37. MIRTAZAPINE [Concomitant]
  38. CODEINE SULFATE [Concomitant]

REACTIONS (16)
  - ARTHRALGIA [None]
  - ASTHENIA [None]
  - BACK PAIN [None]
  - COUGH [None]
  - HAEMATURIA [None]
  - HEAD INJURY [None]
  - HYPOGLYCAEMIA [None]
  - JOINT INJURY [None]
  - JOINT SPRAIN [None]
  - LIMB INJURY [None]
  - MUSCULOSKELETAL CHEST PAIN [None]
  - OVERDOSE [None]
  - PAIN IN EXTREMITY [None]
  - POST-TRAUMATIC PAIN [None]
  - SKELETAL INJURY [None]
  - SPINAL OSTEOARTHRITIS [None]
